FAERS Safety Report 8790493 (Version 1)
Quarter: 2012Q4

REPORT INFORMATION
  Report Type: Spontaneous
  Country: CA (occurrence: None)
  Receive Date: 20120904
  Receipt Date: 20120904
  Transmission Date: 20130627
  Serious: Yes (Life-Threatening, Hospitalization)
  Sender: FDA-Public Use
  Company Number: AECAN201200424

PATIENT
  Age: 84 Year
  Sex: Female

DRUGS (3)
  1. GAMUNEX [Suspect]
     Indication: CHRONIC INFLAMMATORY DEMYELINATING POLYRADICULONEUROPATHY
     Route: 042
     Dates: start: 20120709, end: 20120820
  2. TYLENOL /00020001/ [Concomitant]
  3. SOLUCORTEF [Concomitant]

REACTIONS (4)
  - Flushing [None]
  - Transfusion related complication [None]
  - Dyspnoea [None]
  - Stridor [None]
